FAERS Safety Report 23810729 (Version 2)
Quarter: 2024Q2

REPORT INFORMATION
  Report Type: Spontaneous
  Country: KR (occurrence: KR)
  Receive Date: 20240502
  Receipt Date: 20240614
  Transmission Date: 20240716
  Serious: Yes (Hospitalization)
  Sender: FDA-Public Use
  Company Number: KR-TEVA-VS-3191664

PATIENT
  Age: 48 Year
  Sex: Female

DRUGS (3)
  1. BENDAMUSTINE [Suspect]
     Active Substance: BENDAMUSTINE
     Indication: Follicular lymphoma
     Route: 065
  2. PREDNISOLONE [Suspect]
     Active Substance: PREDNISOLONE
     Indication: Follicular lymphoma
     Route: 048
  3. RITUXIMAB [Suspect]
     Active Substance: RITUXIMAB
     Indication: Follicular lymphoma
     Route: 065

REACTIONS (4)
  - Organising pneumonia [Recovering/Resolving]
  - Myelosuppression [Recovering/Resolving]
  - Hypogammaglobulinaemia [Recovering/Resolving]
  - COVID-19 [Recovering/Resolving]
